FAERS Safety Report 22525513 (Version 8)
Quarter: 2025Q4

REPORT INFORMATION
  Report Type: Report from Study
  Country: US (occurrence: None)
  Receive Date: 20230606
  Receipt Date: 20251127
  Transmission Date: 20260117
  Serious: Yes (Other)
  Sender: UCB
  Company Number: US-Zogenix International Limited, A wholly owned subsidiary of Zogenix, Inc.-2022ZX000657

PATIENT
  Age: 25 Year
  Weight: 58.1 kg

DRUGS (6)
  1. FENFLURAMINE [Suspect]
     Active Substance: FENFLURAMINE
     Indication: Severe myoclonic epilepsy of infancy
     Dosage: 0.45 MILLIGRAM/KILOGRAM
  2. FENFLURAMINE [Suspect]
     Active Substance: FENFLURAMINE
     Indication: Epilepsy
     Dosage: 6 MILLILITER, 2X/DAY (BID)
  3. FENFLURAMINE [Suspect]
     Active Substance: FENFLURAMINE
     Indication: Off label use
     Dosage: 6 MILLILITER, 2X/DAY (BID)
  4. LACOSAMIDE [Concomitant]
     Active Substance: LACOSAMIDE
     Indication: Epilepsy
     Dosage: 150 MG AM AND 200 MG PM
  5. CLOBAZAM [Concomitant]
     Active Substance: CLOBAZAM
     Indication: Epilepsy
     Dosage: 5 MG AM AND 10 MG PM
  6. LACOSAMIDEEDIDIOLEX [Concomitant]
     Indication: Epilepsy
     Dosage: 360 MG AM AND PM

REACTIONS (7)
  - Right atrial dilatation [Recovered/Resolved]
  - Tricuspid valve incompetence [Recovering/Resolving]
  - Mitral valve incompetence [Unknown]
  - Left atrial dilatation [Recovered/Resolved]
  - Mitral valve thickening [Not Recovered/Not Resolved]
  - Pulmonary valve incompetence [Unknown]
  - Off label use [Unknown]
